FAERS Safety Report 21175937 (Version 1)
Quarter: 2022Q3

REPORT INFORMATION
  Report Type: Spontaneous
  Country: US (occurrence: None)
  Receive Date: 20220804
  Receipt Date: 20220804
  Transmission Date: 20221027
  Serious: Yes (Death)
  Sender: FDA-Public Use
  Company Number: None

PATIENT
  Sex: Male

DRUGS (2)
  1. PROLIA [Suspect]
     Active Substance: DENOSUMAB
     Dosage: 60 MG/ML??INJECT 1 ML UNDER THE SKIN (SUBCUTANEOUS INJECTIO) EVERY 6 MONTHS?
     Route: 058
     Dates: start: 20210903
  2. PROLIA [Suspect]
     Active Substance: DENOSUMAB
     Dosage: OTHER FREQUENCY : EVERY 6 MONTHS;?
     Route: 058

REACTIONS (1)
  - Death [None]
